FAERS Safety Report 24036435 (Version 4)
Quarter: 2024Q4

REPORT INFORMATION
  Report Type: Spontaneous
  Country: US (occurrence: US)
  Receive Date: 20240701
  Receipt Date: 20241030
  Transmission Date: 20250114
  Serious: No
  Sender: BRISTOL-MYERS SQUIBB COMPANY
  Company Number: US-BRISTOL-MYERS SQUIBB COMPANY-2024-104827

PATIENT
  Age: 77 Year
  Sex: Female
  Weight: 82.1 kg

DRUGS (2)
  1. POMALYST [Suspect]
     Active Substance: POMALIDOMIDE
     Indication: Plasma cell myeloma
     Route: 048
  2. POMALYST [Suspect]
     Active Substance: POMALIDOMIDE
     Route: 048
     Dates: start: 20230501

REACTIONS (5)
  - Asthenia [Recovering/Resolving]
  - Fatigue [Recovered/Resolved]
  - COVID-19 [Unknown]
  - Illness [Recovering/Resolving]
  - Nausea [Recovering/Resolving]
